FAERS Safety Report 15695642 (Version 2)
Quarter: 2019Q1

REPORT INFORMATION
  Report Type: Spontaneous
  Country: FR (occurrence: FR)
  Receive Date: 20181206
  Receipt Date: 20190128
  Transmission Date: 20190417
  Serious: Yes (Other)
  Sender: FDA-Public Use
  Company Number: FR-UCBSA-2018052728

PATIENT
  Age: 29 Year
  Sex: Female

DRUGS (2)
  1. EDEX [Suspect]
     Active Substance: ALPROSTADIL
     Indication: WRONG PRODUCT ADMINISTERED
     Route: 058
     Dates: start: 20181107
  2. FRAGMINE [Concomitant]
     Active Substance: DALTEPARIN SODIUM
     Indication: PRODUCT USED FOR UNKNOWN INDICATION

REACTIONS (3)
  - Abdominal pain lower [Recovered/Resolved]
  - Wrong product administered [Unknown]
  - Medication error [Unknown]

NARRATIVE: CASE EVENT DATE: 20181107
